FAERS Safety Report 8006257-2 (Version None)
Quarter: 2011Q4

REPORT INFORMATION
  Report Type: 
  Country: None (occurrence: None)
  Receive Date: 20111226
  Receipt Date: 20111215
  Transmission Date: 20120403
  Serious: Yes (Hospitalization)
  Sender: FDA-Public Use
  Company Number: PHHO2011GB06961

PATIENT
  Sex: Male
  Weight: 84.3 kg

DRUGS (12)
  1. BLINDED NO TREATMENT RECEIVED [Suspect]
     Dosage: CODE NOT BROKEN
     Route: 048
     Dates: start: 20110614, end: 20110725
  2. ENALAPRIL MALEATE [Suspect]
     Indication: CARDIAC FAILURE CHRONIC
     Dosage: UNK
     Route: 048
     Dates: start: 20110309, end: 20110314
  3. ENALAPRIL MALEATE [Suspect]
     Dosage: UNK
     Route: 048
     Dates: start: 20110316
  4. VALSARTAN [Suspect]
     Indication: CARDIAC FAILURE CHRONIC
     Dosage: CODE NOT BROKEN
     Route: 048
     Dates: start: 20110511, end: 20110605
  5. TAMSULOSIN HCL [Suspect]
  6. ENALAPRIL MALEATE [Suspect]
     Indication: CARDIAC FAILURE CHRONIC
     Dosage: CODE NOT BROKEN
     Route: 048
     Dates: start: 20110511, end: 20110605
  7. VALSARTAN [Suspect]
     Dosage: CODE NOT BROKEN
     Route: 048
     Dates: start: 20110729
  8. BLINDED NO TREATMENT RECEIVED [Suspect]
     Indication: CARDIAC FAILURE CHRONIC
     Dosage: CODE NOT BROKEN
     Route: 048
     Dates: start: 20110511, end: 20110605
  9. ENALAPRIL MALEATE [Suspect]
     Dosage: CODE NOT BROKEN
     Route: 048
     Dates: start: 20110614, end: 20110725
  10. ENALAPRIL MALEATE [Suspect]
     Dosage: CODE NOT BROKEN
     Route: 048
     Dates: start: 20110729
  11. VALSARTAN [Suspect]
     Dosage: CODE NOT BROKEN
     Route: 048
     Dates: start: 20110614, end: 20110725
  12. BLINDED NO TREATMENT RECEIVED [Suspect]
     Dosage: CODE NOT BROKEN
     Route: 048
     Dates: start: 20110729

REACTIONS (5)
  - ABDOMINAL PAIN [None]
  - URINARY TRACT INFECTION [None]
  - CONSTIPATION [None]
  - CONCOMITANT DISEASE PROGRESSION [None]
  - DEHYDRATION [None]
